FAERS Safety Report 14368754 (Version 3)
Quarter: 2018Q3

REPORT INFORMATION
  Report Type: Spontaneous
  Country: US (occurrence: US)
  Receive Date: 20180109
  Receipt Date: 20180705
  Transmission Date: 20181010
  Serious: No
  Sender: FDA-Public Use
  Company Number: US-PFIZER INC-2018004825

PATIENT
  Age: 55 Year
  Sex: Female

DRUGS (11)
  1. NEOSAR [Concomitant]
     Active Substance: CYCLOPHOSPHAMIDE
     Dosage: UNK
  2. TRIAMTERENE. [Concomitant]
     Active Substance: TRIAMTERENE
     Dosage: UNK
     Dates: start: 20080101
  3. DOCETAXEL. [Suspect]
     Active Substance: DOCETAXEL
     Indication: BREAST CANCER FEMALE
     Dosage: 135 MG, CYCLIC (6 CYCLES, EVERY THREE WEEKS)
     Dates: start: 20130807, end: 20131120
  4. ATORVASTATIN [Concomitant]
     Active Substance: ATORVASTATIN
     Dosage: UNK
     Dates: start: 20080101
  5. DOCETAXEL. [Suspect]
     Active Substance: DOCETAXEL
     Indication: BREAST CANCER FEMALE
     Dosage: 135 MG, CYCLIC (6 CYCLES, EVERY THREE WEEKS)
     Dates: start: 20130807, end: 20131120
  6. CYTOXAN [Concomitant]
     Active Substance: CYCLOPHOSPHAMIDE
     Dosage: 1086 MG, UNK
  7. LOSARTIN [Concomitant]
     Active Substance: LOSARTAN
     Dosage: UNK
     Dates: start: 20100101
  8. XANAX [Concomitant]
     Active Substance: ALPRAZOLAM
     Dosage: UNK
     Dates: start: 20080101
  9. ATENOLOL. [Concomitant]
     Active Substance: ATENOLOL
     Dosage: UNK
     Dates: start: 20080101
  10. VENLAFAXINE [Concomitant]
     Active Substance: VENLAFAXINE HYDROCHLORIDE
     Dosage: UNK
     Dates: start: 20100101
  11. DOCETAXEL SANDOZ [Suspect]
     Active Substance: DOCETAXEL
     Indication: BREAST CANCER FEMALE
     Dosage: 135 MG, CYCLIC (6 CYCLES, EVERY THREE WEEKS)
     Dates: start: 20130807, end: 20131120

REACTIONS (6)
  - Hair texture abnormal [Not Recovered/Not Resolved]
  - Hair disorder [Not Recovered/Not Resolved]
  - Alopecia [Unknown]
  - Depression [Unknown]
  - Hair colour changes [Not Recovered/Not Resolved]
  - Madarosis [Unknown]

NARRATIVE: CASE EVENT DATE: 20130901
